FAERS Safety Report 4286537-7 (Version None)
Quarter: 2004Q1

REPORT INFORMATION
  Report Type: 
  Country: None (occurrence: None)
  Receive Date: 20040204
  Receipt Date: 20040126
  Transmission Date: 20041129
  Serious: Yes (Death)
  Sender: FDA-Public Use
  Company Number: ALZ-6009

PATIENT
  Age: 78 Year
  Sex: Male
  Weight: 75 kg

DRUGS (2)
  1. DOXORUBICIN HYDROCHLORIDE [Suspect]
     Indication: BLADDER CANCER
     Dosage: 92 MG, INTRAVENOUS
     Route: 042
     Dates: start: 20000126, end: 20000126
  2. PERCOCET [Concomitant]

REACTIONS (10)
  - APNOEA [None]
  - CHILLS [None]
  - DECREASED APPETITE [None]
  - DRUG TOXICITY [None]
  - FEELING COLD [None]
  - MARKEDLY REDUCED DIETARY INTAKE [None]
  - PULMONARY EMBOLISM [None]
  - PULSE ABSENT [None]
  - PUPIL FIXED [None]
  - UROSEPSIS [None]
